FAERS Safety Report 25016330 (Version 1)
Quarter: 2025Q1

REPORT INFORMATION
  Report Type: Spontaneous
  Country: AU (occurrence: AU)
  Receive Date: 20250227
  Receipt Date: 20250227
  Transmission Date: 20250409
  Serious: Yes (Hospitalization)
  Sender: NOVO NORDISK
  Company Number: None

PATIENT
  Age: 71 Year
  Sex: Male

DRUGS (14)
  1. OZEMPIC [Suspect]
     Active Substance: SEMAGLUTIDE
     Indication: Type 2 diabetes mellitus
  2. OZEMPIC [Suspect]
     Active Substance: SEMAGLUTIDE
  3. ESOMEPRAZOLE MAGNESIUM [Concomitant]
     Active Substance: ESOMEPRAZOLE MAGNESIUM
  4. PREGABALIN [Concomitant]
     Active Substance: PREGABALIN
  5. GLICLAZIDE [Concomitant]
     Active Substance: GLICLAZIDE
  6. PERINDOPRIL ARGININE [Concomitant]
     Active Substance: PERINDOPRIL ARGININE
  7. ASPIRIN [Concomitant]
     Active Substance: ASPIRIN
  8. DUTASTERIDE\TAMSULOSIN HYDROCHLORIDE [Concomitant]
     Active Substance: DUTASTERIDE\TAMSULOSIN HYDROCHLORIDE
  9. JANUMET XR [Concomitant]
     Active Substance: METFORMIN HYDROCHLORIDE\SITAGLIPTIN PHOSPHATE
  10. CANNABIDIOL\HERBALS\TETRAHYDROCANNABINOL UNSPECIFIED [Concomitant]
     Active Substance: CANNABIDIOL\HERBALS\TETRAHYDROCANNABINOL UNSPECIFIED
  11. NORSPAN [Concomitant]
     Active Substance: BUPRENORPHINE
  12. PALEXIA [Concomitant]
     Active Substance: TAPENTADOL HYDROCHLORIDE
  13. TRAMADOL [Suspect]
     Active Substance: TRAMADOL
     Indication: Product used for unknown indication
  14. ATORVASTATIN CALCIUM PROPYLENE GLYCOL SOLVATE [Concomitant]
     Active Substance: ATORVASTATIN CALCIUM PROPYLENE GLYCOL SOLVATE

REACTIONS (6)
  - Obstruction gastric [Recovered/Resolved]
  - Cardiac failure congestive [Unknown]
  - Chest pain [Unknown]
  - Diabetic ketoacidosis [Unknown]
  - Troponin abnormal [Unknown]
  - Drug dose titration not performed [Unknown]

NARRATIVE: CASE EVENT DATE: 20250115
